FAERS Safety Report 7326315-5 (Version None)
Quarter: 2011Q1

REPORT INFORMATION
  Report Type: 
  Country: None (occurrence: None)
  Receive Date: 20110302
  Receipt Date: 20110224
  Transmission Date: 20110831
  Serious: Yes (Hospitalization)
  Sender: FDA-Public Use
  Company Number: A0916155A

PATIENT
  Sex: Female

DRUGS (3)
  1. FLUTICASONE PROPIONATE/SALMETEROL [Suspect]
     Indication: PULMONARY FIBROSIS
     Dosage: 1PUFF TWICE PER DAY
     Route: 055
     Dates: start: 20090801
  2. MANIDIPINE HYDROCHLORIDE [Concomitant]
     Dosage: 1TAB TWICE PER DAY
     Route: 048
  3. DIGOXIN [Concomitant]
     Route: 065

REACTIONS (4)
  - PLEURAL EFFUSION [None]
  - FATIGUE [None]
  - PRODUCT QUALITY ISSUE [None]
  - DYSPNOEA [None]
